FAERS Safety Report 5008926-5 (Version None)
Quarter: 2006Q2

REPORT INFORMATION
  Report Type: 
  Country: None (occurrence: None)
  Receive Date: 20060518
  Receipt Date: 20060509
  Transmission Date: 20061013
  Serious: Yes (Other)
  Sender: FDA-Public Use
  Company Number: 083-21880-06050469

PATIENT
  Sex: 0

DRUGS (5)
  1. REVLIMID [Suspect]
     Indication: MULTIPLE MYELOMA
     Dosage: 5-10  MG, QD FOR 21D, Q 4-6 WEEKS, ORAL
     Route: 048
  2. MELPHALAN (MELPHALAN) [Suspect]
     Indication: MULTIPLE MYELOMA
     Dosage: 0.18-0.25 MG, FOR 4 DAYS, Q 4-6 WEEKS
  3. PREDNISONE TAB [Suspect]
     Indication: MULTIPLE MYELOMA
     Dosage: 2 MG/KG, FOR 4 DAYS, Q 4-6 WEEKS
  4. CIPROFLOXACIN [Suspect]
     Indication: PROPHYLAXIS
  5. ASPIRIN [Suspect]
     Indication: PROPHYLAXIS

REACTIONS (2)
  - DRUG TOXICITY [None]
  - METABOLIC DISORDER [None]
